FAERS Safety Report 14871299 (Version 1)
Quarter: 2018Q2

REPORT INFORMATION
  Report Type: Spontaneous
  Country: AU (occurrence: AU)
  Receive Date: 20180509
  Receipt Date: 20180509
  Transmission Date: 20180711
  Serious: Yes (Other)
  Sender: FDA-Public Use
  Company Number: AU-TEIKOKU PHARMA USA-TPU2018-00319

PATIENT
  Age: 80 Year
  Sex: Male

DRUGS (11)
  1. CALCIUM [Concomitant]
     Active Substance: CALCIUM
  2. DENOSUMAB [Concomitant]
     Active Substance: DENOSUMAB
  3. PREDNISOLONE. [Concomitant]
     Active Substance: PREDNISOLONE
  4. VERSATIS [Suspect]
     Active Substance: LIDOCAINE
     Indication: POST HERPETIC NEURALGIA
     Route: 061
  5. DOCETAXEL. [Concomitant]
     Active Substance: DOCETAXEL
  6. MOVICOL [Concomitant]
     Active Substance: POLYETHYLENE GLYCOL 3350\POTASSIUM CHLORIDE\SODIUM BICARBONATE\SODIUM CHLORIDE
  7. LUCRIN [Concomitant]
     Active Substance: LEUPROLIDE ACETATE
  8. VITAMINS [Concomitant]
     Active Substance: VITAMINS
  9. LYRICA [Concomitant]
     Active Substance: PREGABALIN
  10. PARACETAMOL [Concomitant]
     Active Substance: ACETAMINOPHEN
  11. FENTORA [Concomitant]
     Active Substance: FENTANYL CITRATE

REACTIONS (3)
  - Product adhesion issue [Recovered/Resolved]
  - Wrong technique in product usage process [Recovered/Resolved]
  - Malignant neoplasm progression [Unknown]
